FAERS Safety Report 6810586-5 (Version None)
Quarter: 2010Q2

REPORT INFORMATION
  Report Type: 
  Country: None (occurrence: None)
  Receive Date: 20100630
  Receipt Date: 20100623
  Transmission Date: 20101027
  Serious: Yes (Hospitalization)
  Sender: FDA-Public Use
  Company Number: FR-BAXTER-2010BH016936

PATIENT
  Age: 78 Year
  Sex: Female

DRUGS (20)
  1. SUPRANE [Suspect]
     Indication: ANAESTHESIA PROCEDURE
     Route: 055
     Dates: start: 20100115, end: 20100115
  2. SUFENTANIL CITRATE [Suspect]
     Indication: ANAESTHESIA PROCEDURE
     Route: 042
     Dates: start: 20100115, end: 20100115
  3. PROPOFOL [Suspect]
     Indication: ANAESTHESIA PROCEDURE
     Route: 042
     Dates: start: 20100115, end: 20100115
  4. ATRACURIUM [Suspect]
     Indication: ANAESTHESIA PROCEDURE
     Route: 042
     Dates: start: 20100115, end: 20100115
  5. AUGMENTIN '125' [Suspect]
     Indication: DRUG USE FOR UNKNOWN INDICATION
     Route: 042
     Dates: start: 20100115, end: 20100115
  6. NAROPIN [Suspect]
     Indication: ANAESTHESIA PROCEDURE
     Route: 065
     Dates: start: 20100115, end: 20100115
  7. PERFALGAN [Suspect]
     Indication: ANAESTHESIA PROCEDURE
     Route: 042
     Dates: start: 20100115, end: 20100117
  8. ACUPAN [Suspect]
     Indication: ANAESTHESIA PROCEDURE
     Route: 042
     Dates: start: 20100115, end: 20100117
  9. DROPERIDOL [Suspect]
     Indication: ANAESTHESIA PROCEDURE
     Route: 042
     Dates: start: 20100115, end: 20100115
  10. EPHEDRINE [Suspect]
     Indication: ANAESTHESIA PROCEDURE
     Route: 042
     Dates: start: 20100115, end: 20100115
  11. ATROPINE SULFATE [Suspect]
     Indication: ANAESTHESIA PROCEDURE
     Route: 042
     Dates: start: 20100115, end: 20100115
  12. NEURONTIN [Suspect]
     Indication: PREMEDICATION
     Route: 065
     Dates: start: 20100114, end: 20100114
  13. NEURONTIN [Suspect]
     Route: 065
     Dates: start: 20100115, end: 20100115
  14. NORMACOL [Suspect]
     Indication: PREMEDICATION
     Route: 054
     Dates: start: 20100114, end: 20100114
  15. POVIDONE IODINE [Suspect]
     Indication: INFECTION PROPHYLAXIS
     Route: 003
     Dates: start: 20100114, end: 20100115
  16. POVIDONE IODINE [Suspect]
     Indication: PREOPERATIVE CARE
     Route: 003
     Dates: start: 20100115, end: 20100115
  17. POVIDONE IODINE [Suspect]
     Route: 067
     Dates: start: 20100115, end: 20100115
  18. INDAPAMIDE [Concomitant]
     Indication: DRUG USE FOR UNKNOWN INDICATION
     Route: 065
     Dates: end: 20100101
  19. LIPANOR [Concomitant]
     Indication: DRUG USE FOR UNKNOWN INDICATION
     Route: 065
     Dates: end: 20100101
  20. ARTOTEC [Concomitant]
     Indication: DRUG USE FOR UNKNOWN INDICATION
     Route: 065
     Dates: end: 20100101

REACTIONS (3)
  - OLIGURIA [None]
  - RENAL FAILURE ACUTE [None]
  - RHEUMATOID ARTHRITIS [None]
